FAERS Safety Report 19157717 (Version 3)
Quarter: 2022Q2

REPORT INFORMATION
  Report Type: Spontaneous
  Country: CN (occurrence: CN)
  Receive Date: 20210420
  Receipt Date: 20220418
  Transmission Date: 20220720
  Serious: Yes (Hospitalization, Other)
  Sender: FDA-Public Use
  Company Number: CN-SUN PHARMACEUTICAL INDUSTRIES LTD-2021R1-292219

PATIENT
  Age: 10 Month
  Sex: Female
  Weight: 7 kg

DRUGS (1)
  1. DIGOXIN [Suspect]
     Active Substance: DIGOXIN
     Indication: Heart disease congenital
     Dosage: 0.25 MILLIGRAM, DAILY
     Route: 048

REACTIONS (9)
  - Toxicity to various agents [Unknown]
  - Vomiting [Unknown]
  - Bundle branch block right [Unknown]
  - Ventricular fibrillation [Unknown]
  - Loss of consciousness [Unknown]
  - Diarrhoea [Unknown]
  - Feeding disorder [Unknown]
  - Mental impairment [Unknown]
  - Incorrect dose administered [Unknown]
